FAERS Safety Report 23836186 (Version 2)
Quarter: 2024Q2

REPORT INFORMATION
  Report Type: Spontaneous
  Country: GB (occurrence: GB)
  Receive Date: 20240509
  Receipt Date: 20240515
  Transmission Date: 20240716
  Serious: Yes (Hospitalization)
  Sender: FDA-Public Use
  Company Number: GB-MYLANLABS-2024M1041215

PATIENT
  Sex: Male

DRUGS (1)
  1. CLOZARIL [Suspect]
     Active Substance: CLOZAPINE
     Indication: Schizophrenia
     Dosage: 325 MILLIGRAM
     Route: 048
     Dates: start: 20100513, end: 20240501

REACTIONS (4)
  - Mental impairment [Unknown]
  - Blood pressure increased [Unknown]
  - Treatment noncompliance [Unknown]
  - Therapy interrupted [Unknown]
